FAERS Safety Report 5006793-7 (Version None)
Quarter: 2006Q2

REPORT INFORMATION
  Report Type: 
  Country: None (occurrence: None)
  Receive Date: 20060516
  Receipt Date: 20060502
  Transmission Date: 20061013
  Serious: Yes (Hospitalization)
  Sender: FDA-Public Use
  Company Number: 2006EU001480

PATIENT
  Age: 29 Year
  Sex: Female

DRUGS (4)
  1. FK506(TACROLIMUS CAPSULES)(TACROLIMUS) CAPSULE [Suspect]
     Indication: RENAL AND PANCREAS TRANSPLANT
     Dosage: 12 MG, D, ORAL
     Route: 048
     Dates: start: 20030420
  2. MEDROL ACETATE [Concomitant]
  3. ZESTRIL [Concomitant]
  4. CALCIUM CARBONATE [Concomitant]

REACTIONS (2)
  - ABDOMINAL PAIN UPPER [None]
  - CHOLELITHIASIS [None]
